FAERS Safety Report 9639832 (Version 2)
Quarter: 2013Q4

REPORT INFORMATION
  Report Type: Report from Study
  Country: NL (occurrence: NL)
  Receive Date: 20131023
  Receipt Date: 20131121
  Transmission Date: 20140711
  Serious: Yes (Hospitalization)
  Sender: FDA-Public Use
  Company Number: NL-BAYER-2013-125505

PATIENT
  Age: 57 Year
  Sex: Male

DRUGS (10)
  1. BETAFERON [Suspect]
     Dosage: 187.5 ?G, UNK
  2. BETAFERON [Suspect]
     Dosage: 250 ?G, QOD
  3. ASASANTIN [Concomitant]
     Dosage: 200 MG, BID
  4. ESOMEPRAZOLE [Concomitant]
     Dosage: 40 MG, QD
  5. FORLAX [Concomitant]
     Dosage: 20 G, QD
  6. HYDROCHLOROTHIAZIDE [Concomitant]
     Dosage: 50 MG, QD
  7. LIORESAL [Concomitant]
     Dosage: 5 MG, QID
  8. LIPITOR [Concomitant]
     Dosage: 10 MG, QD
  9. TAMSULOSIN HYDROCHLORIDE [Concomitant]
     Dosage: 0.4 MG, QD
  10. DIAZEPAM [Concomitant]
     Dosage: 5 MG, QID

REACTIONS (6)
  - Fall [Recovered/Resolved]
  - Bone contusion [Recovered/Resolved]
  - Influenza [None]
  - Feeling abnormal [None]
  - Fatigue [Not Recovered/Not Resolved]
  - Bursitis [Not Recovered/Not Resolved]
